FAERS Safety Report 16959641 (Version 1)
Quarter: 2019Q4

REPORT INFORMATION
  Report Type: Spontaneous
  Country: GB (occurrence: GB)
  Receive Date: 20191025
  Receipt Date: 20191025
  Transmission Date: 20200122
  Serious: Yes (Other)
  Sender: FDA-Public Use
  Company Number: GB-TEVA-2019-GB-1127191

PATIENT
  Age: 71 Year
  Sex: Male

DRUGS (8)
  1. FELODIPINE. [Concomitant]
     Active Substance: FELODIPINE
  2. LANSOPRAZOLE. [Concomitant]
     Active Substance: LANSOPRAZOLE
  3. ATORVASTATIN [Concomitant]
     Active Substance: ATORVASTATIN
  4. TAMSULOSIN [Concomitant]
     Active Substance: TAMSULOSIN
  5. CLOPIDOGREL [Concomitant]
     Active Substance: CLOPIDOGREL BISULFATE
  6. FELOPECT XL [Concomitant]
  7. RAMIPRIL. [Concomitant]
     Active Substance: RAMIPRIL
  8. LAMOTRIGINE. [Suspect]
     Active Substance: LAMOTRIGINE
     Indication: HEADACHE
     Dosage: STRENGTH: 25 MG 1 DAYS ?STARTED 2 MONTHS AGO
     Route: 048
     Dates: start: 20180611, end: 20180828

REACTIONS (3)
  - Off label use [Unknown]
  - Arthralgia [Recovered/Resolved]
  - Bone pain [Not Recovered/Not Resolved]
